FAERS Safety Report 20311495 (Version 1)
Quarter: 2022Q1

REPORT INFORMATION
  Report Type: Other
  Country: FR (occurrence: FR)
  Receive Date: 20220108
  Receipt Date: 20220108
  Transmission Date: 20220423
  Serious: Yes (Disabling)
  Sender: FDA-Public Use
  Company Number: None

PATIENT

DRUGS (2)
  1. AMIODARONE [Suspect]
     Active Substance: AMIODARONE
     Indication: Atrial fibrillation
     Dosage: UNK
     Route: 048
  2. VAXZEVRIA [Suspect]
     Active Substance: AZD-1222
     Indication: COVID-19 immunisation
     Dosage: 1 DOSAGE FORM (1 CYCLICAL)
     Route: 030
     Dates: start: 20210326

REACTIONS (1)
  - Optic ischaemic neuropathy [Not Recovered/Not Resolved]

NARRATIVE: CASE EVENT DATE: 20210402
